FAERS Safety Report 8178739-4 (Version None)
Quarter: 2012Q1

REPORT INFORMATION
  Report Type: 
  Country: None (occurrence: None)
  Receive Date: 20120301
  Receipt Date: 20120301
  Transmission Date: 20120608
  Serious: Yes (Other)
  Sender: FDA-Public Use
  Company Number: None

PATIENT
  Sex: Female
  Weight: 54.431 kg

DRUGS (1)
  1. SCOPOLAMINE [Suspect]
     Indication: PROPHYLAXIS AGAINST MOTION SICKNESS
     Dates: start: 20111127, end: 20111129

REACTIONS (5)
  - HALLUCINATION [None]
  - RESTLESSNESS [None]
  - INCOHERENT [None]
  - DISORIENTATION [None]
  - MEMORY IMPAIRMENT [None]
